FAERS Safety Report 9989660 (Version 1)
Quarter: 2014Q1

REPORT INFORMATION
  Report Type: Report from Study
  Country: US (occurrence: US)
  Receive Date: 20140310
  Receipt Date: 20140310
  Transmission Date: 20141002
  Serious: No
  Sender: FDA-Public Use
  Company Number: US-ABBVIE-13P-163-1132111-00

PATIENT
  Age: 35 Year
  Sex: Female

DRUGS (11)
  1. HUMIRA [Suspect]
     Indication: CROHN^S DISEASE
     Dosage: TUESDAY
     Dates: start: 20130611, end: 20130806
  2. MERCAPTOPURINE [Concomitant]
     Indication: CROHN^S DISEASE
     Route: 048
  3. NADELOL [Concomitant]
     Indication: HEART RATE IRREGULAR
     Route: 048
  4. LORAZEPAM [Concomitant]
     Indication: ANXIETY
     Dosage: AT BEDTIME AND AS NEEDED
     Route: 048
  5. PENTASA [Concomitant]
     Indication: CROHN^S DISEASE
     Route: 048
  6. FOLIC ACID [Concomitant]
     Indication: PRODUCT USED FOR UNKNOWN INDICATION
     Route: 048
  7. MIRALAX [Concomitant]
     Indication: CROHN^S DISEASE
     Route: 048
  8. CALCIUM + VITAMIN D [Concomitant]
     Indication: MINERAL SUPPLEMENTATION
     Dosage: DAILY
     Route: 048
  9. CALCIUM + VITAMIN D [Concomitant]
     Indication: VITAMIN SUPPLEMENTATION
  10. VITAMIN B12 [Concomitant]
     Indication: VITAMIN SUPPLEMENTATION
  11. VITAMIN B12 [Concomitant]
     Dosage: DAILY
     Dates: start: 201308

REACTIONS (3)
  - Alopecia [Not Recovered/Not Resolved]
  - Pain in extremity [Not Recovered/Not Resolved]
  - Arthralgia [Not Recovered/Not Resolved]
